FAERS Safety Report 23146659 (Version 1)
Quarter: 2023Q4

REPORT INFORMATION
  Report Type: Spontaneous
  Country: US (occurrence: US)
  Receive Date: 20231105
  Receipt Date: 20231105
  Transmission Date: 20240110
  Serious: No
  Sender: FDA-Public Use
  Company Number: US-009507513-2310USA003401

PATIENT
  Age: 43 Year
  Sex: Female

DRUGS (2)
  1. INVANZ [Suspect]
     Active Substance: ERTAPENEM SODIUM
     Indication: Pericarditis
  2. INVANZ [Suspect]
     Active Substance: ERTAPENEM SODIUM
     Indication: Abdominal abscess

REACTIONS (1)
  - Product use in unapproved indication [Unknown]
